FAERS Safety Report 13935610 (Version 1)
Quarter: 2017Q3

REPORT INFORMATION
  Report Type: Spontaneous
  Country: GB (occurrence: GB)
  Receive Date: 20170905
  Receipt Date: 20170905
  Transmission Date: 20171127
  Serious: Yes (Death, Other)
  Sender: FDA-Public Use
  Company Number: GB-TEVA-800952ACC

PATIENT
  Age: 72 Year
  Sex: Female

DRUGS (11)
  1. CO-DYDRAMOL [Concomitant]
     Active Substance: ACETAMINOPHEN\DIHYDROCODEINE
  2. CARBOPLATIN. [Suspect]
     Active Substance: CARBOPLATIN
     Indication: BREAST CANCER
  3. DEXAMETHASONE. [Concomitant]
     Active Substance: DEXAMETHASONE
  4. BISOPROLOL [Concomitant]
     Active Substance: BISOPROLOL
  5. DOSULEPIN HYDROCHLORIDE [Concomitant]
     Active Substance: DOTHIEPIN HYDROCHLORIDE
  6. LANSOPRAZOLE. [Concomitant]
     Active Substance: LANSOPRAZOLE
  7. ZOPICLONE [Concomitant]
     Active Substance: ZOPICLONE
  8. RANITIDINE. [Concomitant]
     Active Substance: RANITIDINE
  9. TRAMADOL. [Concomitant]
     Active Substance: TRAMADOL
  10. ETOPOSIDE. [Suspect]
     Active Substance: ETOPOSIDE
     Indication: BREAST CANCER
  11. TERBUTALINE [Concomitant]
     Active Substance: TERBUTALINE

REACTIONS (4)
  - Hypokalaemia [Unknown]
  - Neutropenic sepsis [Fatal]
  - Hyponatraemia [Unknown]
  - Pancytopenia [Unknown]

NARRATIVE: CASE EVENT DATE: 20170514
